FAERS Safety Report 14342940 (Version 1)
Quarter: 2018Q1

REPORT INFORMATION
  Report Type: Spontaneous
  Country: FR (occurrence: FR)
  Receive Date: 20180102
  Receipt Date: 20180102
  Transmission Date: 20180509
  Serious: Yes (Other)
  Sender: FDA-Public Use
  Company Number: FR-SYNTHON BV-NL01PV17_45706

PATIENT
  Sex: Male

DRUGS (1)
  1. TAMSULOSINE TEVA [Suspect]
     Active Substance: TAMSULOSIN HYDROCHLORIDE
     Dosage: 1 DOSAGE FORMS DAILY; TAKEN IN THE EVENING
     Route: 065

REACTIONS (3)
  - Tachycardia [Unknown]
  - Heart rate abnormal [Unknown]
  - Arrhythmia [Unknown]
